FAERS Safety Report 5710326-7 (Version None)
Quarter: 2008Q2

REPORT INFORMATION
  Report Type: 
  Country: None (occurrence: None)
  Receive Date: 20080418
  Receipt Date: 20080407
  Transmission Date: 20081010
  Serious: Yes (Hospitalization)
  Sender: FDA-Public Use
  Company Number: FR-PFIZER INC-2008031081

PATIENT
  Age: 64 Year
  Sex: Female

DRUGS (1)
  1. SUTENT [Suspect]
     Indication: FIBROSARCOMA
     Dosage: DAILY DOSE:50MG-FREQ:ONCE DAILY FOR 4 WEEKS EVERY 6 WEEKS

REACTIONS (4)
  - APATHY [None]
  - ASTHENIA [None]
  - COMA [None]
  - HYPOTHYROIDISM [None]
